FAERS Safety Report 21993456 (Version 1)
Quarter: 2023Q1

REPORT INFORMATION
  Report Type: Spontaneous
  Country: US (occurrence: US)
  Receive Date: 20230215
  Receipt Date: 20230215
  Transmission Date: 20230418
  Serious: No
  Sender: FDA-Public Use
  Company Number: US-TEVA-2023-US-2852029

PATIENT
  Sex: Female

DRUGS (2)
  1. CLONAZEPAM [Suspect]
     Active Substance: CLONAZEPAM
     Indication: Major depression
     Dosage: 2 MG
     Route: 065
  2. Klonopin GENENTECH [Concomitant]
     Indication: Product used for unknown indication
     Dosage: 2 MG

REACTIONS (1)
  - Insomnia [Unknown]
